FAERS Safety Report 19137040 (Version 1)
Quarter: 2021Q2

REPORT INFORMATION
  Report Type: Spontaneous
  Country: DE (occurrence: DE)
  Receive Date: 20210415
  Receipt Date: 20210415
  Transmission Date: 20210717
  Serious: Yes (Hospitalization)
  Sender: FDA-Public Use
  Company Number: DE-DRREDDYS-GER/GER/21/0133926

PATIENT
  Age: 75 Year
  Sex: Female

DRUGS (12)
  1. PANTOPRAZOLE [Concomitant]
     Active Substance: PANTOPRAZOLE
     Indication: PRODUCT USED FOR UNKNOWN INDICATION
     Dosage: 40 MG, BEDARF, TABLETTEN
  2. DULOXETINE. [Suspect]
     Active Substance: DULOXETINE
     Indication: PRODUCT USED FOR UNKNOWN INDICATION
     Dosage: 30 MG, 1?0?0?0, KAPSELN
  3. CINNARIZIN/DIMENHYDRINAT [Concomitant]
     Indication: PRODUCT USED FOR UNKNOWN INDICATION
     Dosage: 20|40 MG, 1?1?1?0, TABLETTEN
  4. METOPROLOL. [Concomitant]
     Active Substance: METOPROLOL
     Indication: PRODUCT USED FOR UNKNOWN INDICATION
     Dosage: 23.75 MG, 1?0?0?0, RETARD?TABLETTEN
  5. RASAGILINE. [Suspect]
     Active Substance: RASAGILINE
     Indication: PRODUCT USED FOR UNKNOWN INDICATION
     Dosage: 1 MG, 1?0?0?0, TABLETTEN
  6. TAPENTADOL [Suspect]
     Active Substance: TAPENTADOL
     Indication: PRODUCT USED FOR UNKNOWN INDICATION
     Dosage: 50 MG, 1?0?1?0, RETARD?TABLETTEN
  7. LEVODOPA W/CARBIDOPA [Concomitant]
     Active Substance: CARBIDOPA\LEVODOPA
     Indication: PRODUCT USED FOR UNKNOWN INDICATION
     Dosage: 25|100 MG, 1?1?1?1, TABLETTEN
  8. ROTIGOTIN [Concomitant]
     Active Substance: ROTIGOTINE
     Indication: PRODUCT USED FOR UNKNOWN INDICATION
     Dosage: 8 MG/D, 1?0?0?0, PFLASTER TRANSDERMAL
     Route: 062
  9. RIVASTIGMINE. [Suspect]
     Active Substance: RIVASTIGMINE
     Indication: PRODUCT USED FOR UNKNOWN INDICATION
     Dosage: 9.5 MG, 1?0?0?0
  10. VALSARTAN. [Concomitant]
     Active Substance: VALSARTAN
     Indication: PRODUCT USED FOR UNKNOWN INDICATION
     Dosage: 80 MG, 0.5?0?2?0, TABLETTEN
  11. TROSPIUM [Concomitant]
     Active Substance: TROSPIUM
     Indication: PRODUCT USED FOR UNKNOWN INDICATION
     Dosage: 30 MG, 0.5?0?0.5?0, TABLETTEN
  12. ROTIGOTIN [Concomitant]
     Active Substance: ROTIGOTINE
     Dosage: 4 MG/D, 1?0?0?0, PFLASTER TRANSDERMAL
     Route: 062

REACTIONS (6)
  - Haematemesis [Unknown]
  - Hypertension [Unknown]
  - Asthenia [Unknown]
  - Product prescribing error [Unknown]
  - Pallor [Unknown]
  - Tremor [Unknown]
